FAERS Safety Report 7339702-6 (Version None)
Quarter: 2011Q1

REPORT INFORMATION
  Report Type: 
  Country: None (occurrence: None)
  Receive Date: 20110309
  Receipt Date: 20110225
  Transmission Date: 20110831
  Serious: Yes (Other)
  Sender: FDA-Public Use
  Company Number: FR-ELI_LILLY_AND_COMPANY-FR201103000196

PATIENT
  Age: 43 Year
  Sex: Male

DRUGS (4)
  1. BYETTA [Suspect]
     Dosage: 10 UG, 2/D
     Route: 058
     Dates: start: 20110215
  2. BYETTA [Suspect]
     Indication: TYPE 2 DIABETES MELLITUS
     Dosage: 10 UG, 2/D
     Route: 058
     Dates: start: 20080901, end: 20100901
  3. VICTOZA [Concomitant]
     Indication: TYPE 2 DIABETES MELLITUS
     Dosage: 1.8 MG, DAILY (1/D)
     Route: 058
     Dates: start: 20100901, end: 20101215
  4. METFORMIN [Concomitant]
     Indication: TYPE 2 DIABETES MELLITUS
     Dosage: 2 G, DAILY (1/D)
     Route: 048

REACTIONS (3)
  - RENAL FAILURE [None]
  - WEIGHT DECREASED [None]
  - PANCREATITIS [None]
